FAERS Safety Report 10761577 (Version 1)
Quarter: 2015Q1

REPORT INFORMATION
  Report Type: Spontaneous
  Country: US (occurrence: None)
  Receive Date: 20150203
  Receipt Date: 20150203
  Transmission Date: 20150721
  Serious: Yes (Disabling)
  Sender: FDA-Public Use
  Company Number: None

PATIENT
  Age: 57 Year
  Sex: Female
  Weight: 86.18 kg

DRUGS (3)
  1. CIPRO [Suspect]
     Active Substance: CIPROFLOXACIN HYDROCHLORIDE
     Indication: URINARY TRACT INFECTION
     Dosage: 2 PILLS TWICE DAILY
     Route: 048
  2. CIPRO [Suspect]
     Active Substance: CIPROFLOXACIN HYDROCHLORIDE
     Indication: CATARACT
     Dosage: 2 PILLS TWICE DAILY
     Route: 048
  3. CIPRO [Suspect]
     Active Substance: CIPROFLOXACIN HYDROCHLORIDE
     Indication: THERAPEUTIC PROCEDURE
     Dosage: 2 PILLS TWICE DAILY
     Route: 048

REACTIONS (10)
  - Abdominal pain [None]
  - Bone disorder [None]
  - Pain in extremity [None]
  - Neuroma [None]
  - Neuropathy peripheral [None]
  - Sinus congestion [None]
  - Temporomandibular joint syndrome [None]
  - Arthralgia [None]
  - Dizziness [None]
  - Neuralgia [None]

NARRATIVE: CASE EVENT DATE: 20141112
